FAERS Safety Report 23369888 (Version 1)
Quarter: 2024Q1

REPORT INFORMATION
  Report Type: Spontaneous
  Country: IT (occurrence: IT)
  Receive Date: 20240105
  Receipt Date: 20240105
  Transmission Date: 20240410
  Serious: Yes (Other)
  Sender: FDA-Public Use
  Company Number: IT-JNJFOC-20231238296

PATIENT
  Age: 37 Year
  Sex: Male

DRUGS (2)
  1. XANAX [Suspect]
     Active Substance: ALPRAZOLAM
     Indication: Product used for unknown indication
     Dosage: 12 DOSAGE FORM
     Route: 065
  2. HALDOL [Suspect]
     Active Substance: HALOPERIDOL
     Indication: Product used for unknown indication
     Dosage: 1 BOTTLE
     Route: 048

REACTIONS (6)
  - Intentional self-injury [Unknown]
  - Hypotension [Unknown]
  - Sopor [Unknown]
  - Intentional product misuse [Unknown]
  - Off label use [Unknown]
  - Overdose [Unknown]
